FAERS Safety Report 24330352 (Version 1)
Quarter: 2024Q3

REPORT INFORMATION
  Report Type: Spontaneous
  Country: NL (occurrence: NL)
  Receive Date: 20240918
  Receipt Date: 20240918
  Transmission Date: 20241016
  Serious: Yes (Life-Threatening, Hospitalization, Other)
  Sender: SHILPA MEDICARE
  Company Number: NL-EMA-DD-20200327-b8q5m4-160911

PATIENT
  Age: 68 Year
  Sex: Male

DRUGS (7)
  1. IMATINIB [Suspect]
     Active Substance: IMATINIB
     Indication: Chronic myeloid leukaemia
     Dosage: MAINTENANCE THERAPY
     Route: 065
     Dates: start: 201411, end: 201610
  2. IMATINIB [Suspect]
     Active Substance: IMATINIB
     Dosage: 20 MILLIGRAM
     Route: 065
     Dates: start: 201701
  3. IMATINIB [Suspect]
     Active Substance: IMATINIB
     Dosage: INITIAL DOSE OF 400 MG
     Route: 065
  4. CLOPIDOGREL [Interacting]
     Active Substance: CLOPIDOGREL BISULFATE
     Indication: Product used for unknown indication
     Dosage: FOR A FEW MONTHS
     Route: 065
     Dates: start: 201607, end: 201705
  5. ALFACALCIDOL [Interacting]
     Active Substance: ALFACALCIDOL
     Indication: Product used for unknown indication
     Route: 065
  6. SIMVASTATIN [Interacting]
     Active Substance: SIMVASTATIN
     Indication: Product used for unknown indication
     Route: 065
     Dates: start: 2007, end: 20180611
  7. BUMETANIDE [Concomitant]
     Active Substance: BUMETANIDE
     Indication: Product used for unknown indication
     Dosage: FOR A FEW MONTHS
     Route: 065
     Dates: start: 20160725

REACTIONS (5)
  - Organising pneumonia [Recovered/Resolved]
  - Interstitial lung disease [Recovered/Resolved]
  - Pulmonary toxicity [Recovered/Resolved]
  - Idiopathic interstitial pneumonia [Recovered/Resolved]
  - Drug interaction [Recovered/Resolved]

NARRATIVE: CASE EVENT DATE: 20161001
